FAERS Safety Report 8084345-2 (Version None)
Quarter: 2012Q1

REPORT INFORMATION
  Report Type: 
  Country: None (occurrence: None)
  Receive Date: 20120128
  Receipt Date: 20110131
  Transmission Date: 20120608
  Serious: No
  Sender: FDA-Public Use
  Company Number: US-ABBOTT-11P-163-0701595-00

PATIENT
  Age: 71 Year
  Sex: Female

DRUGS (5)
  1. TRICOR [Concomitant]
     Indication: BLOOD CHOLESTEROL INCREASED
  2. HUMIRA [Suspect]
     Indication: CROHN'S DISEASE
     Dosage: 160MG LOADING DOSE
     Dates: start: 20110111, end: 20110111
  3. BALSALAZIDE DISODIUM [Concomitant]
     Indication: CROHN'S DISEASE
  4. SYNTHROID [Concomitant]
     Indication: HYPOTHYROIDISM
  5. HUMIRA [Suspect]
     Dosage: 80MG LOADING DOSE

REACTIONS (1)
  - COUGH [None]
